FAERS Safety Report 13110015 (Version 1)
Quarter: 2017Q1

REPORT INFORMATION
  Report Type: Spontaneous
  Country: US (occurrence: US)
  Receive Date: 20170112
  Receipt Date: 20170112
  Transmission Date: 20170428
  Serious: Yes (Other)
  Sender: FDA-Public Use
  Company Number: US-ROCHE-1209915

PATIENT
  Age: 68 Year
  Sex: Male

DRUGS (3)
  1. HEPARIN [Concomitant]
     Active Substance: HEPARIN SODIUM
     Dosage: DOSE:10,000 UNITS
     Route: 042
  2. ACTILYSE [Suspect]
     Active Substance: ALTEPLASE
     Indication: PULMONARY EMBOLISM
     Dosage: OVER 1 MINUTE
     Route: 040
  3. ACTILYSE [Suspect]
     Active Substance: ALTEPLASE
     Dosage: OVER THE HOUR
     Route: 042

REACTIONS (1)
  - Haematoma [Recovered/Resolved]
